FAERS Safety Report 7631251-0 (Version None)
Quarter: 2011Q3

REPORT INFORMATION
  Report Type: 
  Country: None (occurrence: None)
  Receive Date: 20110715
  Receipt Date: 20110705
  Transmission Date: 20111222
  Serious: Yes (Death, Hospitalization)
  Sender: FDA-Public Use
  Company Number: BENZ20110003

PATIENT
  Age: 42 Year
  Sex: Female

DRUGS (4)
  1. BENZTROPINE MESYLATE [Suspect]
     Indication: PRODUCT USED FOR UNKNOWN INDICATION
     Dosage: 2 MG, 2 IN 1 D, ORAL
     Route: 048
  2. CHLORPROMAZINE [Concomitant]
  3. DOCUSATE SODIUM (DOCUSATE SODIUM) [Concomitant]
  4. LITHIUM CARBONATE [Concomitant]

REACTIONS (16)
  - SEPSIS [None]
  - ABDOMINAL DISTENSION [None]
  - BLOOD CALCIUM DECREASED [None]
  - PULSELESS ELECTRICAL ACTIVITY [None]
  - LARGE INTESTINAL OBSTRUCTION [None]
  - BUNDLE BRANCH BLOCK LEFT [None]
  - CARDIAC ARREST [None]
  - SINUS TACHYCARDIA [None]
  - MULTI-ORGAN FAILURE [None]
  - HYPERMAGNESAEMIA [None]
  - POSTOPERATIVE ADHESION [None]
  - CONSTIPATION [None]
  - RESPIRATORY RATE INCREASED [None]
  - GASTROINTESTINAL NECROSIS [None]
  - HYPOTHERMIA [None]
  - HYPOTENSION [None]
